FAERS Safety Report 11202467 (Version 2)
Quarter: 2015Q3

REPORT INFORMATION
  Report Type: Report from Study
  Country: CA (occurrence: CA)
  Receive Date: 20150619
  Receipt Date: 20150723
  Transmission Date: 20151125
  Serious: Yes (Hospitalization, Other)
  Sender: FDA-Public Use
  Company Number: CA-ABBVIE-15K-028-1409457-00

PATIENT
  Sex: Male
  Weight: 79.45 kg

DRUGS (1)
  1. HUMIRA [Suspect]
     Active Substance: ADALIMUMAB
     Indication: CROHN^S DISEASE
     Route: 058
     Dates: start: 20110107, end: 20150522

REACTIONS (3)
  - Aortic occlusion [Recovered/Resolved]
  - Angina unstable [Unknown]
  - Arteriosclerosis coronary artery [Unknown]
